FAERS Safety Report 8336979-5 (Version None)
Quarter: 2012Q2

REPORT INFORMATION
  Report Type: 
  Country: None (occurrence: None)
  Receive Date: 20120504
  Receipt Date: 20120501
  Transmission Date: 20120825
  Serious: Yes (Hospitalization, Other)
  Sender: FDA-Public Use
  Company Number: PHHY2012DK027734

PATIENT
  Sex: Male

DRUGS (27)
  1. PREDNISONE TAB [Suspect]
     Dosage: DOSAGE FORM: UNSPECIFIED
     Route: 048
     Dates: start: 20110905
  2. VINCRISTINE [Suspect]
     Dosage: 2 MG, UNK
     Route: 042
     Dates: start: 20110905
  3. VINCRISTINE [Suspect]
     Dosage: DOSAGE FORM: UNSPECIFIED
     Route: 042
     Dates: start: 20110905
  4. VINCRISTINE [Suspect]
     Dosage: DOSAGE FORM: UNSPECIFIED
     Route: 042
     Dates: start: 20110822
  5. WARFARIN SODIUM [Suspect]
     Indication: DEEP VEIN THROMBOSIS
     Dosage: 5 MG, UNK
     Route: 048
     Dates: start: 20111205
  6. RITUXIMAB [Suspect]
     Dosage: DOSAGE FORM: UNSPECIFIED
     Route: 042
     Dates: start: 20120123
  7. PREDNISONE TAB [Suspect]
     Indication: MALIGNANT LYMPHOID NEOPLASM
     Dosage: 100 MG, UNK
     Route: 048
     Dates: start: 20110905
  8. VINCRISTINE [Suspect]
     Indication: MALIGNANT LYMPHOID NEOPLASM
     Dosage: 2 MG, UNK
     Route: 042
     Dates: start: 20110822
  9. VINCRISTINE [Suspect]
     Dosage: DOSAGE FORM: UNSPECIFIED, START PERIOD - 98 DAYS
     Route: 042
     Dates: start: 20111205
  10. RITUXIMAB [Suspect]
     Indication: MALIGNANT LYMPHOID NEOPLASM
     Dosage: 500 MG, UNK
     Route: 042
     Dates: start: 20110822
  11. NEUPOGEN [Suspect]
     Indication: MALIGNANT LYMPHOID NEOPLASM
     Dosage: 6 MG, UNK
     Route: 042
     Dates: start: 20110823
  12. NEUPOGEN [Suspect]
     Dosage: 6 MG, UNK
     Route: 042
     Dates: start: 20110906
  13. RITUXIMAB [Suspect]
     Dosage: 700 MG, UNK
     Route: 042
     Dates: start: 20120123
  14. CYCLOPHOSPHAMIDE [Suspect]
     Indication: MALIGNANT LYMPHOID NEOPLASM
     Dosage: 1500 MG, UNK
     Route: 042
     Dates: start: 20110822
  15. RITUXIMAB [Suspect]
     Dosage: DOSAGE FORM: UNSPECIFIED
     Route: 042
     Dates: start: 20110905
  16. NEUPOGEN [Suspect]
     Dosage: DOSAGE FORM: UNSPECIFIED
     Route: 042
     Dates: start: 20110823
  17. RITUXIMAB [Suspect]
     Dosage: 800 MG, UNK
     Route: 042
     Dates: start: 20110905
  18. PREDNISONE TAB [Suspect]
     Indication: INFLAMMATION
     Dosage: 500 MG, UNK
     Route: 048
     Dates: start: 20110822
  19. PREDNISONE TAB [Suspect]
     Dosage: DOSAGE FORM: UNSPECIFIED, START PERIOD - 203 DAYS
     Route: 048
     Dates: start: 20110822
  20. DOXORUBICIN HYDROCHLORIDE [Suspect]
     Dosage: 100 MG, UNK
     Route: 042
     Dates: start: 20110905
  21. DOXORUBICIN HYDROCHLORIDE [Suspect]
     Dosage: DOSAGE FORM: LIPOSOME INJECTION
     Route: 042
     Dates: start: 20110905
  22. DOXORUBICIN HYDROCHLORIDE [Suspect]
     Dosage: DOSAGE FORM: LIPOSOME INJECTION
     Route: 042
     Dates: start: 20110822
  23. CYCLOPHOSPHAMIDE [Suspect]
     Dosage: 1500 MG, UNK
     Route: 042
     Dates: start: 20110905
  24. NEUPOGEN [Suspect]
     Dosage: DOSAGE FORM: UNSPECIFIED
     Route: 042
     Dates: start: 20110906
  25. WARFARIN SODIUM [Suspect]
     Dosage: DOSAGE FORM: UNSPECIFIED
     Route: 048
     Dates: start: 20111205
  26. DOXORUBICIN HYDROCHLORIDE [Suspect]
     Indication: MALIGNANT LYMPHOID NEOPLASM
     Dosage: 100 MG, UNK
     Route: 042
     Dates: start: 20110822
  27. RITUXIMAB [Suspect]
     Dosage: DOSAGE FORM: UNSPECIFIED
     Route: 042
     Dates: start: 20110822

REACTIONS (2)
  - GASTRIC ULCER HAEMORRHAGE [None]
  - PNEUMOTHORAX [None]
